FAERS Safety Report 18380740 (Version 3)
Quarter: 2020Q4

REPORT INFORMATION
  Report Type: Spontaneous
  Country: RU (occurrence: RU)
  Receive Date: 20201013
  Receipt Date: 20201106
  Transmission Date: 20210114
  Serious: Yes (Hospitalization)
  Sender: FDA-Public Use
  Company Number: RU-BIOGEN-2020BI00933803

PATIENT
  Age: 23 Year
  Sex: Male
  Weight: 57 kg

DRUGS (3)
  1. AMINOPHENYL BUTYRATE [Concomitant]
     Indication: PRODUCT USED FOR UNKNOWN INDICATION
     Dosage: 250 MG 1/2 OF A TABLET THREE TIMES DAILY ORALLY FOR A WEEK
     Route: 048
  2. AMINOPHENYL BUTYRATE [Concomitant]
     Dosage: TABLET THREE TIMES DAILY ORALLY FOR UP TO 2 MONTHS
     Route: 048
  3. TYSABRI [Suspect]
     Active Substance: NATALIZUMAB
     Indication: RELAPSING-REMITTING MULTIPLE SCLEROSIS
     Dosage: INFUSED OVER 1 HOUR
     Route: 065
     Dates: start: 20200115, end: 20200909

REACTIONS (2)
  - COVID-19 [Unknown]
  - Multiple sclerosis [Unknown]

NARRATIVE: CASE EVENT DATE: 20200211
